FAERS Safety Report 13233525 (Version 1)
Quarter: 2017Q1

REPORT INFORMATION
  Report Type: Report from Study
  Country: GB (occurrence: GB)
  Receive Date: 20170215
  Receipt Date: 20170215
  Transmission Date: 20170428
  Serious: Yes (Hospitalization, Other)
  Sender: FDA-Public Use
  Company Number: GB-ROCHE-1334697

PATIENT
  Age: 48 Year
  Sex: Male
  Weight: 75 kg

DRUGS (17)
  1. ERYTHROMYCIN. [Concomitant]
     Active Substance: ERYTHROMYCIN
     Indication: COUGH
     Route: 065
     Dates: start: 20141224, end: 20150103
  2. BENDAMUSTINE [Suspect]
     Active Substance: BENDAMUSTINE
     Indication: NON-HODGKIN^S LYMPHOMA UNSPECIFIED HISTOLOGY INDOLENT
     Dosage: ON 22/AUG/2013, MOST RECENT DOSE (180 MG) PRIOR TO ADVERSE EVENT WAS TAKEN.
     Route: 042
     Dates: start: 20130328
  3. CO-AMOXICLAV [Concomitant]
     Active Substance: AMOXICILLIN\CLAVULANIC ACID
     Indication: LUNG CONSOLIDATION
     Route: 065
     Dates: start: 20150304
  4. METOCLOPRAMIDE. [Concomitant]
     Active Substance: METOCLOPRAMIDE
     Indication: VOMITING
     Route: 065
     Dates: start: 20130328
  5. RITUXIMAB [Suspect]
     Active Substance: RITUXIMAB
     Indication: NON-HODGKIN^S LYMPHOMA UNSPECIFIED HISTOLOGY INDOLENT
     Dosage: ON 20/DEC/2013, MOST RECENT DOSE ( VOLUME: 500 ML AT A CONCENTRATION OF 1.5 MG/ML) PRIOR TO ADVERSE
     Route: 042
     Dates: start: 20130328
  6. VALACICLOVIR [Concomitant]
     Active Substance: VALACYCLOVIR HYDROCHLORIDE
     Indication: HERPES ZOSTER
     Route: 065
     Dates: start: 20130612
  7. ACICLOVIR [Concomitant]
     Active Substance: ACYCLOVIR
     Indication: VIRAL INFECTION
     Route: 065
     Dates: start: 20130626
  8. CHLORPHENAMINE [Concomitant]
     Active Substance: CHLORPHENIRAMINE MALEATE
     Route: 065
     Dates: start: 20130328
  9. METOCLOPRAMIDE. [Concomitant]
     Active Substance: METOCLOPRAMIDE
     Indication: NAUSEA
     Route: 065
     Dates: start: 20130320, end: 20130823
  10. PARACETAMOL [Concomitant]
     Active Substance: ACETAMINOPHEN
     Indication: HEADACHE
     Route: 065
     Dates: start: 20130328
  11. ALLOPURINOL. [Concomitant]
     Active Substance: ALLOPURINOL
     Indication: GOUT
     Route: 065
     Dates: start: 20130328, end: 201306
  12. ERYTHROMYCIN. [Concomitant]
     Active Substance: ERYTHROMYCIN
     Indication: INFLUENZA LIKE ILLNESS
     Route: 065
     Dates: start: 20141224, end: 20150103
  13. ERYTHROMYCIN. [Concomitant]
     Active Substance: ERYTHROMYCIN
     Route: 065
     Dates: start: 20150211, end: 20150218
  14. CHLORAMPHENICOL [Concomitant]
     Active Substance: CHLORAMPHENICOL
     Route: 065
     Dates: start: 20140910, end: 20140915
  15. GABAPENTIN. [Concomitant]
     Active Substance: GABAPENTIN
     Indication: PAIN
     Route: 065
     Dates: start: 20130625, end: 201309
  16. LORATADINE. [Concomitant]
     Active Substance: LORATADINE
     Indication: NEURALGIA
     Route: 065
     Dates: start: 20130723
  17. DAKTARIN [Concomitant]
     Active Substance: MICONAZOLE NITRATE
     Indication: FUNGAL SKIN INFECTION
     Route: 065
     Dates: start: 20140910

REACTIONS (4)
  - Lower respiratory tract infection [Recovered/Resolved]
  - Pleuritic pain [Recovered/Resolved]
  - Pneumonia [Recovered/Resolved]
  - Lung consolidation [Recovered/Resolved]

NARRATIVE: CASE EVENT DATE: 201310
